FAERS Safety Report 9931964 (Version 1)
Quarter: 2014Q1

REPORT INFORMATION
  Report Type: Spontaneous
  Country: US (occurrence: None)
  Receive Date: 20140227
  Receipt Date: 20140227
  Transmission Date: 20141002
  Serious: Yes (Hospitalization, Other)
  Sender: FDA-Public Use
  Company Number: None

PATIENT
  Age: 72 Year
  Sex: Male

DRUGS (3)
  1. TRAZODONE [Suspect]
     Indication: SLEEP DISORDER
     Dosage: 1-2 TABS AT BEDTIME W/FOOD?
     Route: 048
     Dates: start: 20140213, end: 20140220
  2. HEART MEDS [Concomitant]
  3. WARFARIN [Concomitant]

REACTIONS (4)
  - Arthralgia [None]
  - Joint crepitation [None]
  - Post procedural complication [None]
  - Therapy change [None]
